FAERS Safety Report 20845841 (Version 1)
Quarter: 2022Q2

REPORT INFORMATION
  Report Type: Spontaneous
  Country: DE (occurrence: DE)
  Receive Date: 20220518
  Receipt Date: 20220518
  Transmission Date: 20220721
  Serious: Yes (Other)
  Sender: FDA-Public Use
  Company Number: DE-BRISTOL-MYERS SQUIBB COMPANY-2022-038600

PATIENT
  Age: 94 Year
  Sex: Female
  Weight: 50 kg

DRUGS (1)
  1. ELIQUIS [Suspect]
     Active Substance: APIXABAN
     Indication: Atrial fibrillation
     Dosage: DOSE : 2.5 MG;     FREQ : TWICE DAILY
     Route: 065

REACTIONS (2)
  - Weight decreased [Unknown]
  - Renal impairment [Unknown]
